FAERS Safety Report 20563837 (Version 1)
Quarter: 2022Q1

REPORT INFORMATION
  Report Type: Spontaneous
  Country: TR (occurrence: TR)
  Receive Date: 20220308
  Receipt Date: 20220308
  Transmission Date: 20220424
  Serious: Yes (Other)
  Sender: FDA-Public Use
  Company Number: TR-ABBVIE-22K-161-4300285-00

PATIENT
  Age: 31 Year
  Sex: Female

DRUGS (2)
  1. VALPROATE SODIUM [Suspect]
     Active Substance: VALPROATE SODIUM
     Indication: Bipolar I disorder
     Dosage: UP TO 1000
     Route: 048
  2. CLOZAPINE [Suspect]
     Active Substance: CLOZAPINE
     Indication: Bipolar I disorder
     Route: 048

REACTIONS (6)
  - Thrombocytopenia [Recovered/Resolved]
  - Libido increased [Unknown]
  - Insomnia [Unknown]
  - Euphoric mood [Unknown]
  - Restlessness [Unknown]
  - Manic symptom [Unknown]
